FAERS Safety Report 22124012 (Version 1)
Quarter: 2023Q1

REPORT INFORMATION
  Report Type: Spontaneous
  Country: US (occurrence: US)
  Receive Date: 20230322
  Receipt Date: 20230322
  Transmission Date: 20230418
  Serious: Yes (Hospitalization)
  Sender: FDA-Public Use
  Company Number: US-ALNYLAM PHARMACEUTICALS, INC.-ALN-2023-001131

PATIENT

DRUGS (1)
  1. GIVLAARI [Suspect]
     Active Substance: GIVOSIRAN SODIUM
     Indication: Porphyria acute
     Dosage: 2.5 MILLIGRAM/KILOGRAM (BODY WEIGHT)
     Route: 065
     Dates: start: 2018

REACTIONS (2)
  - Porphyria acute [Not Recovered/Not Resolved]
  - Hyperhomocysteinaemia [Recovered/Resolved]
